FAERS Safety Report 11808224 (Version 1)
Quarter: 2015Q4

REPORT INFORMATION
  Report Type: Spontaneous
  Country: US (occurrence: US)
  Receive Date: 20151207
  Receipt Date: 20151207
  Transmission Date: 20160305
  Serious: No
  Sender: FDA-Public Use
  Company Number: US-CUMBERLAND PHARMACEUTICALS INC.-1045136

PATIENT
  Age: 28 Year
  Sex: Female

DRUGS (1)
  1. CALDOLOR [Suspect]
     Active Substance: IBUPROFEN

REACTIONS (3)
  - Infusion site swelling [None]
  - Infusion site irritation [None]
  - Infusion site pain [None]
